FAERS Safety Report 5907634-3 (Version None)
Quarter: 2008Q4

REPORT INFORMATION
  Report Type: 
  Country: None (occurrence: None)
  Receive Date: 20081003
  Receipt Date: 20080923
  Transmission Date: 20090506
  Serious: Yes (Hospitalization)
  Sender: FDA-Public Use
  Company Number: US-ROCHE-584969

PATIENT
  Sex: Male
  Weight: 66.7 kg

DRUGS (13)
  1. ROCEPHIN [Suspect]
     Indication: INFECTION
     Route: 042
  2. CALCIUM [Suspect]
     Indication: DRUG USE FOR UNKNOWN INDICATION
     Route: 042
  3. HYDROCHLOROTHIAZIDE [Concomitant]
  4. ALBUTEROL [Concomitant]
     Dosage: DRUG REPORTED : ALBUTEROL INHALER
  5. ADVAIR DISKUS 100/50 [Concomitant]
  6. HEPARINISED SALINE [Concomitant]
     Indication: FLUSHING
     Dosage: DRUG: HEPARIN + SALINE, D5 AND 1/4, 1000 ML OVER 2 HRS DAILY
     Route: 042
  7. L-CARNITINE [Concomitant]
     Dosage: FREQUENCY: QOD
  8. PREVACID [Concomitant]
     Dosage: FREQUENCY: QD
  9. MOTRIN [Concomitant]
     Dosage: FREQUENCY: PRN
  10. ZOFRAN [Concomitant]
     Dosage: FREQUENCY: PRN
  11. TYLENOL (CAPLET) [Concomitant]
     Dosage: FREQUENCY: PRN
  12. LORA TAB [Concomitant]
     Dosage: DRUG REPORTED: LORETAB, FREQUENCY: PRN
  13. 1 CONCOMITANT DRUG [Concomitant]
     Dosage: DRUG REPORTED: D5, 1/4 1000 ML OVER 2 HOURS IV DAILY
     Route: 042

REACTIONS (3)
  - HYPOTENSION [None]
  - LABELLED DRUG-DRUG INTERACTION MEDICATION ERROR [None]
  - RASH [None]
